FAERS Safety Report 6099040-9 (Version None)
Quarter: 2009Q1

REPORT INFORMATION
  Report Type: 
  Country: None (occurrence: None)
  Receive Date: 20090302
  Receipt Date: 20090220
  Transmission Date: 20090719
  Serious: Yes (Other)
  Sender: FDA-Public Use
  Company Number: DE-ALLERGAN-0902272US

PATIENT
  Sex: Female

DRUGS (2)
  1. VISTABEL [Suspect]
     Indication: SKIN WRINKLING
     Dosage: 40 TO 55 UNITS, SINGLE
     Route: 030
     Dates: start: 20080812, end: 20080812
  2. VISTABEL [Suspect]
     Dosage: 40 TO 55 UNITS, SINGLE
     Route: 030
     Dates: start: 20020101, end: 20020101

REACTIONS (3)
  - ATROPHY [None]
  - PARAESTHESIA [None]
  - SKIN DISORDER [None]
